FAERS Safety Report 24970455 (Version 2)
Quarter: 2025Q1

REPORT INFORMATION
  Report Type: Other
  Country: US (occurrence: US)
  Receive Date: 20250214
  Receipt Date: 20250224
  Transmission Date: 20250409
  Serious: Yes (Hospitalization)
  Sender: SERVIER
  Company Number: US-SERVIER-S25001803

PATIENT

DRUGS (1)
  1. ONCASPAR [Suspect]
     Active Substance: PEGASPARGASE
     Indication: Chronic lymphocytic leukaemia
     Route: 042

REACTIONS (2)
  - Penile vein thrombosis [Recovered/Resolved]
  - Pulmonary embolism [Recovered/Resolved]
